FAERS Safety Report 14165005 (Version 4)
Quarter: 2021Q2

REPORT INFORMATION
  Report Type: Report from Study
  Country: JP (occurrence: JP)
  Receive Date: 20171107
  Receipt Date: 20210505
  Transmission Date: 20210716
  Serious: Yes (Hospitalization)
  Sender: FDA-Public Use
  Company Number: JP-BAUSCH-BL-2017-023218

PATIENT
  Age: 66 Year
  Sex: Female

DRUGS (10)
  1. BONALON 5MG [Concomitant]
     Indication: OSTEOPOROSIS
     Route: 048
  2. RIFXIMA TABLETS [Suspect]
     Active Substance: RIFAXIMIN
     Indication: HEPATIC ENCEPHALOPATHY
     Dates: start: 20170629, end: 20170702
  3. TAKECAB [Concomitant]
     Active Substance: VONOPRAZAN FUMARATE
     Indication: VARICES OESOPHAGEAL
     Route: 048
  4. RIFXIMA TABLETS [Suspect]
     Active Substance: RIFAXIMIN
     Route: 048
     Dates: start: 20170703, end: 20170713
  5. AMINOLEBAN [Concomitant]
     Active Substance: AMINO ACIDS, SOURCE UNSPECIFIED
     Indication: HYPERAMMONAEMIA
     Route: 048
     Dates: start: 2015
  6. RIFXIMA TABLETS [Suspect]
     Active Substance: RIFAXIMIN
     Route: 048
     Dates: start: 20170630, end: 20170707
  7. LIFOROS [Concomitant]
     Active Substance: LACTULOSE
     Indication: HYPERAMMONAEMIA
     Route: 048
  8. AMINOLEBAN [Concomitant]
     Active Substance: AMINO ACIDS, SOURCE UNSPECIFIED
     Indication: HEPATIC FAILURE
  9. URSO [Concomitant]
     Active Substance: URSODIOL
     Indication: HEPATITIS
     Route: 048
  10. ANABOLIC STEROIDS AND PREPARATIONS [Concomitant]
     Indication: HEPATITIS
     Route: 048

REACTIONS (2)
  - Decreased appetite [Unknown]
  - Rhabdomyolysis [Not Recovered/Not Resolved]

NARRATIVE: CASE EVENT DATE: 20170707
